FAERS Safety Report 9519783 (Version 1)
Quarter: 2013Q1

REPORT INFORMATION
  Report Type: Spontaneous
  Country: US (occurrence: None)
  Receive Date: 20130305
  Receipt Date: 20130305
  Transmission Date: 20140127
  Serious: Yes (Other)
  Sender: FDA-Public Use
  Company Number: 163-21880-12113217

PATIENT
  Sex: 0

DRUGS (4)
  1. REVLIMID [Suspect]
     Indication: PLASMA CELL MYELOMA
     Dosage: PO
     Route: 048
  2. BORTEZOMIB (BORTEZOMIB) (UNKNOWN) [Suspect]
     Dosage: 1.3 MG/M2, ON DAYS 1, 4, 8, 11, 22, 25, 29, AND 32, IV
     Route: 042
     Dates: start: 201009, end: 201203
  3. CYCLOPHOSPHAMIDE (CYCLOPHOSPHAMIDE) (UNKNOWN) (CYCLOPHOSAPHAMIDE) [Suspect]
     Indication: PLASMA CELL MYELOMA
     Dosage: 300 MG/M2, ON DAYS 1, 8, 22, AND 29, IV
     Route: 042
     Dates: start: 201009, end: 201203
  4. DEXAMETHASONE (DEXAMETHASONE) (UNKNOWN) [Suspect]
     Indication: PLASMA CELL MYELOMA
     Dosage: 40 MG, ON DAYS 1, 8, 22, 29, AND 36, PO
     Route: 048
     Dates: start: 201009, end: 201203

REACTIONS (4)
  - Delirium [None]
  - Syncope [None]
  - Neuropathy peripheral [None]
  - Gastrointestinal toxicity [None]
